FAERS Safety Report 5328382-7 (Version None)
Quarter: 2007Q2

REPORT INFORMATION
  Report Type: 
  Country: None (occurrence: None)
  Receive Date: 20070515
  Receipt Date: 20070515
  Transmission Date: 20071010
  Serious: No
  Sender: FDA-Public Use
  Company Number: None

PATIENT

DRUGS (1)
  1. MEDROXYPROGESTERONE 150 MG/ML SICOR [Suspect]
     Indication: CONTRACEPTION
     Dosage: 150 MG EVERY 3 MONTHS IM
     Route: 030

REACTIONS (1)
  - PHARMACEUTICAL PRODUCT COMPLAINT [None]
